FAERS Safety Report 6198879-9 (Version None)
Quarter: 2009Q2

REPORT INFORMATION
  Report Type: 
  Country: None (occurrence: None)
  Receive Date: 20090522
  Receipt Date: 20090515
  Transmission Date: 20091009
  Serious: Yes (Hospitalization)
  Sender: FDA-Public Use
  Company Number: US-BIOGENIDEC-2009BI015245

PATIENT
  Age: 35 Year
  Sex: Female

DRUGS (2)
  1. AVONEX [Suspect]
     Indication: MULTIPLE SCLEROSIS
     Route: 030
     Dates: start: 20011201, end: 20060526
  2. AVONEX [Suspect]
     Route: 030
     Dates: start: 20090418

REACTIONS (2)
  - CHEST PAIN [None]
  - GALLBLADDER ENLARGEMENT [None]
